FAERS Safety Report 5143490-1 (Version None)
Quarter: 2006Q4

REPORT INFORMATION
  Report Type: 
  Country: None (occurrence: None)
  Receive Date: 20061103
  Receipt Date: 20061006
  Transmission Date: 20070319
  Serious: Yes (Death, Hospitalization)
  Sender: FDA-Public Use
  Company Number: JP-JPN-A200604076

PATIENT
  Age: 90 Year
  Sex: Male

DRUGS (10)
  1. ZOVIRAX [Suspect]
     Indication: HERPES ZOSTER
     Dosage: 400MG FIVE TIMES PER DAY
     Route: 048
     Dates: start: 20060925, end: 20060927
  2. LASIX [Concomitant]
     Indication: HYPERTENSION
     Route: 048
     Dates: end: 20060927
  3. ALLEGRA [Concomitant]
     Dosage: 60MG PER DAY
     Route: 048
     Dates: end: 20060927
  4. MAGLAX [Concomitant]
     Indication: GASTRITIS
     Dosage: 330MG PER DAY
     Route: 048
     Dates: end: 20060927
  5. ALFAROL [Concomitant]
     Route: 048
     Dates: end: 20060927
  6. BLOPRESS [Concomitant]
     Indication: HYPERTENSION
     Route: 048
     Dates: end: 20060927
  7. ALLOPURINOL [Concomitant]
     Indication: GOUT
     Dosage: 100MG PER DAY
     Route: 048
  8. PURSENNID [Concomitant]
     Indication: CONSTIPATION
     Dosage: 24MG PER DAY
     Route: 048
     Dates: end: 20060927
  9. CALTAN [Concomitant]
     Dosage: 1000MG PER DAY
     Route: 048
  10. TINELAC [Concomitant]
     Indication: CONSTIPATION
     Dosage: 24MG PER DAY
     Route: 048
     Dates: start: 20061003

REACTIONS (5)
  - CEREBRAL HAEMORRHAGE [None]
  - DEPRESSED LEVEL OF CONSCIOUSNESS [None]
  - DYSLALIA [None]
  - PARALYSIS [None]
  - TREMOR [None]
